FAERS Safety Report 16104133 (Version 1)
Quarter: 2019Q1

REPORT INFORMATION
  Report Type: Spontaneous
  Country: IT (occurrence: IT)
  Receive Date: 20190322
  Receipt Date: 20190322
  Transmission Date: 20190418
  Serious: Yes (Hospitalization)
  Sender: FDA-Public Use
  Company Number: IT-ACCORD-114508

PATIENT
  Age: 74 Year
  Sex: Male

DRUGS (4)
  1. OKI [Suspect]
     Active Substance: KETOPROFEN LYSINE
     Indication: PRODUCT USED FOR UNKNOWN INDICATION
     Dates: start: 20181108, end: 20181110
  2. CLOPIDOGREL [Suspect]
     Active Substance: CLOPIDOGREL BISULFATE
     Indication: PLATELET AGGREGATION INHIBITION
     Dates: start: 20141101, end: 20181110
  3. NORVASC [Concomitant]
     Active Substance: AMLODIPINE BESYLATE
  4. MICARDIS [Concomitant]
     Active Substance: TELMISARTAN
     Dosage: STRENGTH : 80 MG

REACTIONS (2)
  - Melaena [Unknown]
  - Haematemesis [Unknown]

NARRATIVE: CASE EVENT DATE: 20181111
